FAERS Safety Report 14347316 (Version 2)
Quarter: 2018Q3

REPORT INFORMATION
  Report Type: Spontaneous
  Country: US (occurrence: US)
  Receive Date: 20180103
  Receipt Date: 20180905
  Transmission Date: 20181010
  Serious: Yes (Hospitalization, Other)
  Sender: FDA-Public Use
  Company Number: US-DSJP-DSU-2017-138908

PATIENT

DRUGS (4)
  1. AZOR [Suspect]
     Active Substance: AMLODIPINE BESYLATE\OLMESARTAN MEDOXOMIL
     Indication: HYPERTENSION
     Dosage: 5?40MG, QD
     Route: 048
     Dates: start: 20131017, end: 20131104
  2. BENICAR [Suspect]
     Active Substance: OLMESARTAN MEDOXOMIL
     Indication: HYPERTENSION
     Dosage: 20 MG, QD
     Route: 048
     Dates: start: 20130822
  3. AZOR [Suspect]
     Active Substance: AMLODIPINE BESYLATE\OLMESARTAN MEDOXOMIL
     Dosage: 10?40MG, QD
     Route: 048
     Dates: start: 20131104, end: 20151215
  4. BENICAR [Suspect]
     Active Substance: OLMESARTAN MEDOXOMIL
     Dosage: 40 MG, QD
     Route: 048
     Dates: end: 20131017

REACTIONS (6)
  - Haemorrhoids [Not Recovered/Not Resolved]
  - Hypotension [Unknown]
  - Duodenal ulcer [Unknown]
  - Sprue-like enteropathy [Recovering/Resolving]
  - Acute kidney injury [Not Recovered/Not Resolved]
  - Coeliac disease [Not Recovered/Not Resolved]

NARRATIVE: CASE EVENT DATE: 20151001
